FAERS Safety Report 7970603-6 (Version None)
Quarter: 2011Q4

REPORT INFORMATION
  Report Type: 
  Country: None (occurrence: None)
  Receive Date: 20111212
  Receipt Date: 20111201
  Transmission Date: 20120403
  Serious: Yes (Hospitalization)
  Sender: FDA-Public Use
  Company Number: NL-MEDIMMUNE-MEDI-0014085

PATIENT
  Sex: Female

DRUGS (2)
  1. SYNAGIS [Suspect]
     Route: 030
     Dates: start: 20111108, end: 20111108
  2. SYNAGIS [Suspect]
     Route: 030
     Dates: start: 20111201, end: 20111201

REACTIONS (2)
  - INCISION SITE INFECTION [None]
  - MEDICAL DEVICE CHANGE [None]
